FAERS Safety Report 18723914 (Version 1)
Quarter: 2021Q1

REPORT INFORMATION
  Report Type: Report from Study
  Country: ES (occurrence: ES)
  Receive Date: 20210111
  Receipt Date: 20210111
  Transmission Date: 20210419
  Serious: Yes (Hospitalization)
  Sender: FDA-Public Use
  Company Number: ES-TEVA-2021-ES-1866776

PATIENT
  Age: 73 Year
  Sex: Male

DRUGS (3)
  1. TAMSULOSINA [Concomitant]
     Active Substance: TAMSULOSIN HYDROCHLORIDE
     Dosage: 0.4 MG
  2. AMOXICILINA + ACIDO CLAVULANICO [Suspect]
     Active Substance: AMOXICILLIN\CLAVULANIC ACID
     Dosage: 875 / 125MG EVERY 8 HOURS
     Route: 048
     Dates: start: 20200619, end: 20200626
  3. NAPROXENO (2002A) [Suspect]
     Active Substance: NAPROXEN
     Dosage: 550 MG
     Route: 048
     Dates: start: 20200619, end: 20200626

REACTIONS (1)
  - Hepatitis cholestatic [Recovered/Resolved]

NARRATIVE: CASE EVENT DATE: 20200626
